FAERS Safety Report 18100606 (Version 1)
Quarter: 2020Q3

REPORT INFORMATION
  Report Type: Spontaneous
  Country: GB (occurrence: GB)
  Receive Date: 20200801
  Receipt Date: 20200801
  Transmission Date: 20201103
  Serious: Yes (Life-Threatening, Hospitalization)
  Sender: FDA-Public Use
  Company Number: GB-AUROBINDO-AUR-APL-2011-03992

PATIENT
  Age: 31 Year
  Sex: Female

DRUGS (4)
  1. BENDROFLUMETHAZIDE [Suspect]
     Active Substance: BENDROFLUMETHIAZIDE
     Indication: HYPERTENSION
     Dosage: 2.5 MILLIGRAM, DAILY
     Route: 065
  2. BENDROFLUMETHAZIDE [Suspect]
     Active Substance: BENDROFLUMETHIAZIDE
     Dosage: 5 MILLIGRAM, ONCE A DAY
     Route: 065
  3. RAMIPRIL. [Suspect]
     Active Substance: RAMIPRIL
     Indication: HYPERTENSION
     Dosage: 10 MILLIGRAM, ONCE A DAY
     Route: 065
  4. MESALAZINE [Concomitant]
     Active Substance: MESALAMINE
     Indication: PRODUCT USED FOR UNKNOWN INDICATION
     Dosage: 800 MILLIGRAM, TWO TIMES A DAY
     Route: 065

REACTIONS (17)
  - Blood osmolarity abnormal [Unknown]
  - Blood potassium abnormal [Unknown]
  - Presyncope [Recovered/Resolved]
  - Seizure [Recovered/Resolved]
  - Confusional state [Recovered/Resolved]
  - Asthenia [Recovered/Resolved]
  - Palpitations [Recovered/Resolved]
  - Blood pressure abnormal [Unknown]
  - Blood sodium abnormal [Unknown]
  - Urine sodium abnormal [Unknown]
  - Hyponatraemia [Recovered/Resolved]
  - Hypokalaemia [Recovered/Resolved]
  - Cardiac arrest [Recovered/Resolved]
  - Paraesthesia [Recovered/Resolved]
  - Water intoxication [Recovered/Resolved]
  - Ventricular extrasystoles [Recovered/Resolved]
  - Vomiting [Recovered/Resolved]
